FAERS Safety Report 8477532-2 (Version None)
Quarter: 2012Q2

REPORT INFORMATION
  Report Type: 
  Country: None (occurrence: None)
  Receive Date: 20120629
  Receipt Date: 20120619
  Transmission Date: 20120825
  Serious: Yes (Hospitalization, Disabling, Other)
  Sender: FDA-Public Use
  Company Number: CA-MILLENNIUM PHARMACEUTICALS, INC.-2012-04379

PATIENT

DRUGS (11)
  1. REPAGLINIDE [Concomitant]
  2. EPREX [Concomitant]
  3. DEXAMETHASONE [Concomitant]
  4. REVLIMID [Concomitant]
  5. LACTULOSE [Concomitant]
  6. PAMIDRONATE DISODIUM [Concomitant]
  7. VELCADE [Suspect]
     Indication: PRODUCT USED FOR UNKNOWN INDICATION
     Dosage: 2.3 MG, UNK
     Route: 042
  8. CRESTOR [Concomitant]
  9. GAMMA GLOBULIN                     /00025201/ [Concomitant]
  10. DILTIAZEM HYDROCHOLORIDE [Concomitant]
  11. LANSOPRAZOLE [Concomitant]

REACTIONS (1)
  - GUILLAIN-BARRE SYNDROME [None]
